FAERS Safety Report 5734360-6 (Version None)
Quarter: 2008Q2

REPORT INFORMATION
  Report Type: 
  Country: None (occurrence: None)
  Receive Date: 20080508
  Receipt Date: 20080508
  Transmission Date: 20081010
  Serious: Yes (Hospitalization, Other)
  Sender: FDA-Public Use
  Company Number: None

PATIENT
  Age: 79 Year
  Sex: Female
  Weight: 53.5244 kg

DRUGS (2)
  1. PROCARDIA [Suspect]
     Indication: BLOOD PRESSURE
     Dosage: 60 MG 1 DAILY
     Dates: start: 20060701, end: 20071101
  2. NIFEDIPINE [Suspect]

REACTIONS (9)
  - ABDOMINAL PAIN UPPER [None]
  - DYSPEPSIA [None]
  - FAECALOMA [None]
  - FEAR [None]
  - HAEMORRHOIDAL HAEMORRHAGE [None]
  - HERNIA [None]
  - MEDICATION RESIDUE [None]
  - ORAL INTAKE REDUCED [None]
  - WEIGHT DECREASED [None]
